FAERS Safety Report 13523333 (Version 2)
Quarter: 2017Q4

REPORT INFORMATION
  Report Type: Spontaneous
  Country: US (occurrence: US)
  Receive Date: 20170508
  Receipt Date: 20171207
  Transmission Date: 20180320
  Serious: No
  Sender: FDA-Public Use
  Company Number: US-VIFOR (INTERNATIONAL) INC.-VIT-2017-02763

PATIENT
  Age: 83 Year
  Sex: Female

DRUGS (10)
  1. ASA [Concomitant]
     Active Substance: ASPIRIN
  2. LISINOPRIL. [Concomitant]
     Active Substance: LISINOPRIL
  3. LORATADINE. [Concomitant]
     Active Substance: LORATADINE
  4. DOXAZOSIN [Concomitant]
     Active Substance: DOXAZOSIN\DOXAZOSIN MESYLATE
  5. MAGNESIUM [Concomitant]
     Active Substance: MAGNESIUM
  6. VELTASSA [Suspect]
     Active Substance: PATIROMER
     Indication: HYPERKALAEMIA
     Route: 048
     Dates: start: 20160421
  7. NOVOLIN N [Concomitant]
     Active Substance: INSULIN HUMAN
  8. FLONASE [Concomitant]
     Active Substance: FLUTICASONE PROPIONATE
  9. FENOFIBRATE. [Concomitant]
     Active Substance: FENOFIBRATE
  10. METOPROLOL. [Concomitant]
     Active Substance: METOPROLOL

REACTIONS (3)
  - Drug dose omission [Unknown]
  - Weight increased [Not Recovered/Not Resolved]
  - Limb discomfort [Not Recovered/Not Resolved]

NARRATIVE: CASE EVENT DATE: 2017
